FAERS Safety Report 8352350-4 (Version None)
Quarter: 2012Q2

REPORT INFORMATION
  Report Type: 
  Country: None (occurrence: None)
  Receive Date: 20120511
  Receipt Date: 20120507
  Transmission Date: 20120825
  Serious: Yes (Other)
  Sender: FDA-Public Use
  Company Number: BR-PFIZER INC-2012111762

PATIENT
  Age: 57 Year
  Sex: Female

DRUGS (7)
  1. ANGIPRESS CD [Concomitant]
     Indication: BLOOD PRESSURE ABNORMAL
     Dosage: UNK
  2. AMLODIPINE BESYLATE [Concomitant]
     Indication: BLOOD PRESSURE ABNORMAL
     Dosage: UNK
  3. EVISTA [Concomitant]
     Dosage: UNK
  4. VARENICLINE TARTRATE [Suspect]
     Dosage: 1 MG, 2X/DAY
     Route: 048
  5. OSTEOFIX [Concomitant]
     Indication: OSTEOPOROSIS
     Dosage: UNK
  6. VARENICLINE TARTRATE [Suspect]
     Indication: SMOKING CESSATION THERAPY
     Dosage: UNK
     Route: 048
     Dates: start: 20120401
  7. ASPIRIN [Concomitant]
     Dosage: UNK

REACTIONS (6)
  - ABDOMINAL DISCOMFORT [None]
  - PAIN [None]
  - PYREXIA [None]
  - NAUSEA [None]
  - HEADACHE [None]
  - DENGUE FEVER [None]
